FAERS Safety Report 23314240 (Version 1)
Quarter: 2023Q4

REPORT INFORMATION
  Report Type: Spontaneous
  Country: US (occurrence: US)
  Receive Date: 20231219
  Receipt Date: 20231219
  Transmission Date: 20240110
  Serious: Yes (Hospitalization)
  Sender: FDA-Public Use
  Company Number: US-INTRA-CELLULAR THERAPIES, INC.-2023ICT01785

PATIENT
  Age: 45 Year
  Sex: Female

DRUGS (1)
  1. CAPLYTA [Suspect]
     Active Substance: LUMATEPERONE
     Dosage: 10.5 MG

REACTIONS (4)
  - Nocturnal dyspnoea [Unknown]
  - Wheezing [Unknown]
  - Abdominal distension [Unknown]
  - Fatigue [Unknown]
